FAERS Safety Report 7389619-6 (Version None)
Quarter: 2011Q1

REPORT INFORMATION
  Report Type: 
  Country: None (occurrence: None)
  Receive Date: 20110325
  Receipt Date: 20110314
  Transmission Date: 20110831
  Serious: Yes (Other)
  Sender: FDA-Public Use
  Company Number: 1000017534

PATIENT
  Age: 33 Year
  Sex: Male

DRUGS (4)
  1. ESCITALOPRAM OXALATE [Suspect]
     Indication: PANIC ATTACK
     Dosage: 10 MG (10 MG,1 IN 1 D),ORAL
     Route: 048
     Dates: start: 20100101
  2. TRANXENE [Suspect]
     Indication: PANIC ATTACK
     Dosage: 30 MG (10 MG,3 IN 1 D,ORAL) ; 10 MG (5 MG,2 IN 1 D),ORAL
     Route: 048
     Dates: start: 20100101, end: 20100101
  3. TRANXENE [Suspect]
     Indication: PANIC ATTACK
     Dosage: 30 MG (10 MG,3 IN 1 D,ORAL) ; 10 MG (5 MG,2 IN 1 D),ORAL
     Route: 048
     Dates: start: 20101101
  4. MEPRONIZINE (ACEPROMETAZINE MALEATE, MEPROBAMATE) [Suspect]
     Indication: PANIC ATTACK
     Dosage: 1 DOSAGE FORM (1 DOSAGE FORMS,1 IN 1 D),ORAL
     Route: 048
     Dates: start: 20100101

REACTIONS (2)
  - INFERTILITY MALE [None]
  - SPERMATOZOA ABNORMAL [None]
